FAERS Safety Report 7184020-2 (Version None)
Quarter: 2010Q4

REPORT INFORMATION
  Report Type: 
  Country: None (occurrence: None)
  Receive Date: 20101222
  Receipt Date: 20101208
  Transmission Date: 20110411
  Serious: Yes (Other)
  Sender: FDA-Public Use
  Company Number: PHHY2010US80737

PATIENT
  Sex: Female

DRUGS (2)
  1. MIACALCIN [Suspect]
     Route: 045
  2. RECLAST [Concomitant]
     Dosage: UNK
     Dates: start: 20101130

REACTIONS (2)
  - DRUG INEFFECTIVE [None]
  - FRACTURE [None]
